FAERS Safety Report 7374564-2 (Version None)
Quarter: 2011Q1

REPORT INFORMATION
  Report Type: 
  Country: None (occurrence: None)
  Receive Date: 20110325
  Receipt Date: 20100317
  Transmission Date: 20110831
  Serious: No
  Sender: FDA-Public Use
  Company Number: US-MYLANLABS-2010S1004711

PATIENT
  Age: 49 Year
  Sex: Female

DRUGS (2)
  1. DILAUDID [Suspect]
     Indication: BACK PAIN
     Route: 048
     Dates: start: 20090101, end: 20100301
  2. FENTANYL-100 [Suspect]
     Indication: BACK PAIN
     Dosage: Q3D
     Route: 062
     Dates: start: 20100302

REACTIONS (4)
  - OEDEMA PERIPHERAL [None]
  - APPLICATION SITE RASH [None]
  - DRUG HYPERSENSITIVITY [None]
  - APPLICATION SITE ERYTHEMA [None]
